FAERS Safety Report 16754381 (Version 1)
Quarter: 2019Q4

REPORT INFORMATION
  Report Type: Spontaneous
  Country: GB (occurrence: GB)
  Receive Date: 20190828
  Receipt Date: 20190828
  Transmission Date: 20200122
  Serious: No
  Sender: FDA-Public Use
  Company Number: None

PATIENT
  Age: 32 Year
  Sex: Female

DRUGS (1)
  1. EUMOVATE [Suspect]
     Active Substance: CLOBETASONE BUTYRATE
     Indication: ECZEMA

REACTIONS (1)
  - Steroid withdrawal syndrome [None]

NARRATIVE: CASE EVENT DATE: 20180512
